FAERS Safety Report 9349203 (Version 2)
Quarter: 2013Q3

REPORT INFORMATION
  Report Type: Spontaneous
  Country: DE (occurrence: DE)
  Receive Date: 20130614
  Receipt Date: 20130801
  Transmission Date: 20140515
  Serious: Yes (Hospitalization, Other)
  Sender: FDA-Public Use
  Company Number: DE-GLAXOSMITHKLINE-D0080057B

PATIENT
  Sex: Female

DRUGS (14)
  1. BENLYSTA [Suspect]
     Indication: SYSTEMIC LUPUS ERYTHEMATOSUS
     Dosage: 640MG SINGLE DOSE
     Route: 042
     Dates: start: 20130327, end: 20130327
  2. BENLYSTA [Concomitant]
     Indication: SYSTEMIC LUPUS ERYTHEMATOSUS
     Dosage: 640MG SINGLE DOSE
     Route: 042
     Dates: start: 20130206, end: 20130206
  3. BENLYSTA [Concomitant]
     Indication: SYSTEMIC LUPUS ERYTHEMATOSUS
     Dosage: 640MG SINGLE DOSE
     Route: 042
     Dates: start: 20130220, end: 20130220
  4. TARGIN [Concomitant]
     Dosage: 30MG TWICE PER DAY
     Route: 048
  5. MYCOPHENOLATE MOFETIL [Concomitant]
     Dosage: 500MG THREE TIMES PER DAY
     Route: 048
  6. CARVEDILOL [Concomitant]
     Dosage: 25MG TWICE PER DAY
     Route: 048
  7. AMLODIPIN [Concomitant]
     Dosage: 5MG TWICE PER DAY
     Route: 048
  8. SODIUM BICARBONATE [Concomitant]
     Dosage: 1G THREE TIMES PER DAY
     Route: 048
  9. OMEPRAZOL [Concomitant]
     Dosage: 20MG IN THE MORNING
     Route: 048
  10. FERROSANOL [Concomitant]
     Route: 048
  11. FALITHROM [Concomitant]
     Route: 048
  12. PREDNISOLON [Concomitant]
     Dosage: 10MG PER DAY
     Route: 065
  13. CALCILAC [Concomitant]
     Route: 048
  14. ZOLPIDEM [Concomitant]
     Dosage: 10MG AT NIGHT
     Route: 048

REACTIONS (1)
  - Ovarian abscess [Recovered/Resolved]
